FAERS Safety Report 4315052-7 (Version None)
Quarter: 2004Q1

REPORT INFORMATION
  Report Type: 
  Country: None (occurrence: None)
  Receive Date: 20040309
  Receipt Date: 20040220
  Transmission Date: 20041129
  Serious: Yes (Other)
  Sender: FDA-Public Use
  Company Number: JP_031002040

PATIENT
  Age: 62 Year

DRUGS (3)
  1. GEMZAR [Suspect]
     Indication: NON-SMALL CELL LUNG CANCER
     Dosage: 1300 MG/OTHER
     Route: 050
     Dates: start: 20030821
  2. PACLITAXEL [Concomitant]
  3. PARAPLATIN [Concomitant]

REACTIONS (1)
  - NORMAL PRESSURE HYDROCEPHALUS [None]
